FAERS Safety Report 7973245-1 (Version None)
Quarter: 2011Q4

REPORT INFORMATION
  Report Type: 
  Country: None (occurrence: None)
  Receive Date: 20111213
  Receipt Date: 20111206
  Transmission Date: 20120403
  Serious: Yes (Other)
  Sender: FDA-Public Use
  Company Number: PHHY2007MX09973

PATIENT
  Age: 63 Year
  Sex: Female

DRUGS (1)
  1. ZOLEDRONOC ACID [Suspect]
     Indication: METASTASES TO BONE

REACTIONS (4)
  - NAUSEA [None]
  - DIARRHOEA [None]
  - PYREXIA [None]
  - BONE PAIN [None]
